FAERS Safety Report 5625023-6 (Version None)
Quarter: 2008Q1

REPORT INFORMATION
  Report Type: 
  Country: None (occurrence: None)
  Receive Date: 20080213
  Receipt Date: 20080205
  Transmission Date: 20080703
  Serious: Yes (Other)
  Sender: FDA-Public Use
  Company Number: CH-ASTRAZENECA-2008PK00295

PATIENT
  Age: 28124 Day
  Sex: Female
  Weight: 72 kg

DRUGS (6)
  1. CRESTOR [Suspect]
     Route: 048
     Dates: start: 20071011
  2. BLOPRESS PLUS [Concomitant]
     Indication: HYPERTENSION
     Dosage: 16/12.5 MG DAILY
     Dates: start: 20060101
  3. OMEPRAZOLE [Concomitant]
     Indication: PROPHYLAXIS
     Dates: start: 20040101
  4. ASPIRIN [Concomitant]
     Indication: PROPHYLAXIS
     Dates: start: 20050101
  5. CALCIMAGON [Concomitant]
     Indication: OSTEOPOROSIS
     Dates: start: 20040101
  6. ELTROXIN [Concomitant]
     Indication: HYPOTHYROIDISM
     Dates: start: 20040101

REACTIONS (3)
  - BLOOD ALKALINE PHOSPHATASE INCREASED [None]
  - BLOOD CREATININE INCREASED [None]
  - HEPATIC ENZYME ABNORMAL [None]
